FAERS Safety Report 9852626 (Version 1)
Quarter: 2014Q1

REPORT INFORMATION
  Report Type: Spontaneous
  Country: US (occurrence: US)
  Receive Date: 20140129
  Receipt Date: 20140129
  Transmission Date: 20141002
  Serious: No
  Sender: FDA-Public Use
  Company Number: US-GLAXOSMITHKLINE-A1046331A

PATIENT
  Age: 9 Year
  Sex: Female

DRUGS (3)
  1. MEPRON [Suspect]
     Indication: PNEUMOCYSTIS JIROVECII PNEUMONIA
     Dosage: 10ML PER DAY
     Route: 048
     Dates: start: 20131019
  2. PREDNISONE [Concomitant]
  3. DIFLUCAN [Concomitant]

REACTIONS (3)
  - Nausea [Not Recovered/Not Resolved]
  - Tremor [Unknown]
  - Feeling cold [Unknown]
